FAERS Safety Report 7220674-X (Version None)
Quarter: 2011Q1

REPORT INFORMATION
  Report Type: 
  Country: None (occurrence: None)
  Receive Date: 20110111
  Receipt Date: 20110103
  Transmission Date: 20110831
  Serious: Yes (Other)
  Sender: FDA-Public Use
  Company Number: US-ELI_LILLY_AND_COMPANY-US201001001942

PATIENT
  Sex: Male

DRUGS (11)
  1. HUMALOG [Suspect]
     Dosage: UNK, AS NEEDED
  2. HUMALOG [Suspect]
     Dosage: UNK, 3/D
     Dates: start: 20000101
  3. HUMALOG [Suspect]
     Dosage: UNK, 3/D
  4. HUMALOG [Suspect]
     Dosage: UNK, AS NEEDED
     Dates: start: 20000101
  5. LANTUS [Concomitant]
     Dosage: UNK, 2/D
  6. PRILOSEC [Concomitant]
  7. HUMALOG [Suspect]
     Indication: DIABETES MELLITUS
     Dosage: UNK, 3/D
  8. HUMALOG [Suspect]
     Dosage: UNK, AS NEEDED
  9. PLAVIX [Concomitant]
  10. HUMALOG [Suspect]
     Dosage: UNK, AS NEEDED
  11. HUMALOG [Suspect]
     Dosage: UNK, 3/D

REACTIONS (5)
  - BLINDNESS [None]
  - INTRAOCULAR PRESSURE INCREASED [None]
  - CATARACT [None]
  - EYE HAEMORRHAGE [None]
  - INCORRECT DOSE ADMINISTERED [None]
